FAERS Safety Report 7061413-5 (Version None)
Quarter: 2010Q4

REPORT INFORMATION
  Report Type: 
  Country: None (occurrence: None)
  Receive Date: 20101026
  Receipt Date: 20101013
  Transmission Date: 20110411
  Serious: Yes (Other)
  Sender: FDA-Public Use
  Company Number: PHHY2010FR65427

PATIENT
  Sex: Female
  Weight: 90 kg

DRUGS (5)
  1. TEGRETOL [Suspect]
     Indication: BIPOLAR I DISORDER
     Dosage: 400 MG
     Route: 048
  2. TEGRETOL [Suspect]
     Dosage: 800 MG DAILY
     Dates: start: 20100201
  3. LUTENYL [Concomitant]
  4. EXACYL [Concomitant]
  5. FLURBIPROFEN [Concomitant]

REACTIONS (2)
  - METRORRHAGIA [None]
  - VAGINAL HAEMORRHAGE [None]
